FAERS Safety Report 5961366-4 (Version None)
Quarter: 2008Q4

REPORT INFORMATION
  Report Type: 
  Country: None (occurrence: None)
  Receive Date: 20081121
  Receipt Date: 20081107
  Transmission Date: 20090506
  Serious: Yes (Hospitalization, Other)
  Sender: FDA-Public Use
  Company Number: US-ELI_LILLY_AND_COMPANY-US200811001695

PATIENT
  Sex: Female

DRUGS (2)
  1. GEMZAR [Suspect]
     Indication: BREAST CANCER STAGE IV
     Dosage: UNK, UNK
     Dates: start: 20081016
  2. AVASTIN [Concomitant]
     Indication: BREAST CANCER METASTATIC

REACTIONS (8)
  - BLOOD CREATINE PHOSPHOKINASE INCREASED [None]
  - CHEST DISCOMFORT [None]
  - DYSPNOEA [None]
  - ELECTROCARDIOGRAM LOW VOLTAGE [None]
  - LIVER FUNCTION TEST ABNORMAL [None]
  - MUSCLE INJURY [None]
  - MUSCULAR WEAKNESS [None]
  - PLEURAL EFFUSION [None]
